FAERS Safety Report 16810303 (Version 4)
Quarter: 2020Q4

REPORT INFORMATION
  Report Type: Spontaneous
  Country: US (occurrence: US)
  Receive Date: 20190916
  Receipt Date: 20201112
  Transmission Date: 20210113
  Serious: No
  Sender: FDA-Public Use
  Company Number: US-PFIZER INC-2019396526

PATIENT
  Age: 76 Year
  Sex: Male

DRUGS (2)
  1. SUTENT [Suspect]
     Active Substance: SUNITINIB MALATE
     Indication: RENAL CANCER
     Dosage: 50 MG, CYCLIC (DAILY FOR 14 DAYS FOLLOWED BY ONE WEEK REST)
     Route: 048
     Dates: start: 201908
  2. SUTENT [Suspect]
     Active Substance: SUNITINIB MALATE
     Dosage: 37.5 MG, CYCLIC (DAILY FOR 14 DAYS FOLLOWED BY ONE WEEK REST)
     Route: 048

REACTIONS (3)
  - Product dose omission issue [Unknown]
  - Rash [Unknown]
  - Pruritus [Unknown]
